FAERS Safety Report 11690890 (Version 1)
Quarter: 2015Q4

REPORT INFORMATION
  Report Type: Spontaneous
  Country: US (occurrence: US)
  Receive Date: 20151102
  Receipt Date: 20151102
  Transmission Date: 20160304
  Serious: Yes (Other)
  Sender: FDA-Public Use
  Company Number: US-PFIZER INC-2015365782

PATIENT
  Age: 49 Year
  Sex: Male

DRUGS (2)
  1. LYRICA [Suspect]
     Active Substance: PREGABALIN
     Indication: NEURALGIA
  2. LYRICA [Suspect]
     Active Substance: PREGABALIN
     Indication: PAIN IN EXTREMITY
     Dosage: AROUND IN BETWEEN 50-75MG BUT UNSURE
     Route: 048
     Dates: start: 1999

REACTIONS (6)
  - Suicidal ideation [Recovering/Resolving]
  - Depression [Recovering/Resolving]
  - Aggression [Unknown]
  - Fibromyalgia [Not Recovered/Not Resolved]
  - Anger [Recovering/Resolving]
  - Diabetes mellitus [Not Recovered/Not Resolved]
